FAERS Safety Report 16331431 (Version 1)
Quarter: 2019Q2

REPORT INFORMATION
  Report Type: Spontaneous
  Country: US (occurrence: US)
  Receive Date: 20190412
  Receipt Date: 20190412
  Transmission Date: 20190711
  Serious: No
  Sender: FDA-Public Use
  Company Number: None

PATIENT
  Age: 65 Year
  Sex: Male

DRUGS (1)
  1. CAPECITABINE ++ 500MG ROXANE [Suspect]
     Active Substance: CAPECITABINE
     Indication: RECTAL CANCER
     Dosage: ?          OTHER DOSE:1000 MG/1500 MG;?
     Route: 048
     Dates: start: 201611

REACTIONS (3)
  - Stomatitis [None]
  - Dry mouth [None]
  - Skin fissures [None]

NARRATIVE: CASE EVENT DATE: 201903
